FAERS Safety Report 7491552-6 (Version None)
Quarter: 2011Q2

REPORT INFORMATION
  Report Type: 
  Country: None (occurrence: None)
  Receive Date: 20110519
  Receipt Date: 20110510
  Transmission Date: 20111010
  Serious: Yes (Hospitalization)
  Sender: FDA-Public Use
  Company Number: GXBR2011US01726

PATIENT
  Age: 69 Year
  Sex: Female
  Weight: 57.007 kg

DRUGS (7)
  1. LEVOTHYROXINE SODIUM [Concomitant]
     Dosage: UNK MG, UNK
     Dates: start: 20100717
  2. PRILOSEC [Concomitant]
     Dosage: UNK MG, UNK
     Dates: start: 20090521
  3. LEVOTHYROXINE SODIUM [Concomitant]
     Dosage: UNK MG, UNK
     Dates: start: 20040101, end: 20100716
  4. ATENOLOL [Concomitant]
     Dosage: UNK MG, UNK
     Dates: start: 20040101
  5. FOLIC ACID [Concomitant]
     Dosage: UNK MG, UNK
     Dates: start: 20040101
  6. NAFCILLIN [Suspect]
     Indication: ENDOCARDITIS
     Dosage: UNK G, UNK
     Route: 042
     Dates: start: 20100618, end: 20100717
  7. HYDROCHLOROTHIAZIDE [Concomitant]
     Dosage: UNK MG, UNK
     Dates: start: 20040101, end: 20100721

REACTIONS (1)
  - HYPOKALAEMIA [None]
